FAERS Safety Report 4595982-1 (Version None)
Quarter: 2005Q1

REPORT INFORMATION
  Report Type: 
  Country: None (occurrence: None)
  Receive Date: 20050225
  Receipt Date: 20050215
  Transmission Date: 20050727
  Serious: Yes (Life-Threatening, Hospitalization, Other)
  Sender: FDA-Public Use
  Company Number: HQWYE396017FEB05

PATIENT
  Age: 46 Year
  Sex: Female

DRUGS (4)
  1. VENLAFAXINE HCL [Suspect]
     Indication: DEPRESSION
     Dosage: 75 MG 1X PER 1 DAY ORAL
     Route: 048
     Dates: start: 20050119, end: 20050120
  2. YARROW (ACHILLEA MILLEFOLIUM) [Concomitant]
  3. ST. JOHN'S WORT (HYPERICUM PERFORATUM) [Concomitant]
  4. CLINDAMYCIN (CLINDAMYCIN) [Concomitant]

REACTIONS (9)
  - ANAPHYLACTIC REACTION [None]
  - CEREBRAL ISCHAEMIA [None]
  - CIRCULATORY COLLAPSE [None]
  - DEPRESSED LEVEL OF CONSCIOUSNESS [None]
  - DISTURBANCE IN ATTENTION [None]
  - DIZZINESS [None]
  - HYPOTENSION [None]
  - RESTLESSNESS [None]
  - TINNITUS [None]
